FAERS Safety Report 10062963 (Version 1)
Quarter: 2014Q1

REPORT INFORMATION
  Report Type: Spontaneous
  Country: US (occurrence: None)
  Receive Date: 20140318
  Receipt Date: 20140318
  Transmission Date: 20141002
  Serious: Yes (Other)
  Sender: FDA-Public Use
  Company Number: 163-21660-13091480

PATIENT
  Age: 72 Year
  Sex: Female
  Weight: 56.25 kg

DRUGS (1)
  1. ABRAXANE [Suspect]
     Indication: BREAST CANCER FEMALE
     Dates: start: 20130104

REACTIONS (2)
  - Diplopia [None]
  - Vision blurred [None]
